FAERS Safety Report 10581068 (Version 3)
Quarter: 2017Q1

REPORT INFORMATION
  Report Type: Spontaneous
  Country: US (occurrence: US)
  Receive Date: 20141113
  Receipt Date: 20170220
  Transmission Date: 20170428
  Serious: No
  Sender: FDA-Public Use
  Company Number: US-TEVA-506017USA

PATIENT
  Sex: Female

DRUGS (5)
  1. FENOFIBRIC ACID. [Concomitant]
     Active Substance: FENOFIBRIC ACID
  2. PROGESTERONE. [Suspect]
     Active Substance: PROGESTERONE
     Route: 065
     Dates: start: 198810
  3. PREMARIN [Concomitant]
     Active Substance: ESTROGENS, CONJUGATED
  4. PROGESTERONE. [Suspect]
     Active Substance: PROGESTERONE
     Route: 065
     Dates: start: 2013
  5. CARVEDILOL. [Concomitant]
     Active Substance: CARVEDILOL

REACTIONS (4)
  - Product quality issue [Unknown]
  - Premenstrual syndrome [Unknown]
  - Breast swelling [Unknown]
  - Breast tenderness [Unknown]
